FAERS Safety Report 9539562 (Version 1)
Quarter: 2013Q3

REPORT INFORMATION
  Report Type: Spontaneous
  Country: US (occurrence: US)
  Receive Date: 20130920
  Receipt Date: 20130920
  Transmission Date: 20140515
  Serious: No
  Sender: FDA-Public Use
  Company Number: US-PURDUE-USA-2011-0080303

PATIENT
  Sex: Male

DRUGS (3)
  1. BUTRANS [Suspect]
     Indication: PAIN
     Dosage: 5 MCG, Q1H
     Route: 062
  2. BUTRANS [Suspect]
     Dosage: 5 MCG, Q1H
     Route: 062
  3. VICODIN [Concomitant]
     Indication: PAIN
     Dosage: UNK

REACTIONS (1)
  - Product adhesion issue [Unknown]
